FAERS Safety Report 8201696-9 (Version None)
Quarter: 2012Q1

REPORT INFORMATION
  Report Type: 
  Country: None (occurrence: None)
  Receive Date: 20120312
  Receipt Date: 20120311
  Transmission Date: 20120608
  Serious: Yes (Disabling, Other)
  Sender: FDA-Public Use
  Company Number: CA-PFIZER INC-2011279740

PATIENT
  Age: 50 Year
  Sex: Female

DRUGS (3)
  1. HYDROMORPHONE HCL [Concomitant]
     Indication: PAIN
     Dosage: UNK
  2. LYRICA [Suspect]
     Indication: MYALGIA
     Dosage: 75 MG, 1X/DAY
     Route: 048
     Dates: start: 20110701, end: 20110101
  3. NORTRIPTYLINE [Concomitant]
     Indication: PAIN
     Dosage: UNK

REACTIONS (9)
  - PAIN [None]
  - BLOOD ALKALINE PHOSPHATASE INCREASED [None]
  - RED BLOOD CELL SEDIMENTATION RATE INCREASED [None]
  - MYALGIA [None]
  - JOINT STIFFNESS [None]
  - MUSCULOSKELETAL STIFFNESS [None]
  - OEDEMA [None]
  - ARTHRALGIA [None]
  - RHEUMATOID FACTOR INCREASED [None]
